FAERS Safety Report 10918593 (Version 3)
Quarter: 2015Q2

REPORT INFORMATION
  Report Type: Spontaneous
  Country: US (occurrence: US)
  Receive Date: 20150316
  Receipt Date: 20150623
  Transmission Date: 20150821
  Serious: Yes (Hospitalization)
  Sender: FDA-Public Use
  Company Number: US-ASTELLAS-2015US006606

PATIENT
  Age: 88 Year
  Sex: Male

DRUGS (2)
  1. XTANDI [Suspect]
     Active Substance: ENZALUTAMIDE
     Indication: PROSTATE CANCER
     Route: 048
     Dates: start: 20150129
  2. XTANDI [Suspect]
     Active Substance: ENZALUTAMIDE
     Dosage: 80 TO 120 MG, ONCE DAILY
     Route: 048

REACTIONS (3)
  - Muscle spasms [Recovered/Resolved]
  - Underdose [Unknown]
  - Asthenia [Unknown]

NARRATIVE: CASE EVENT DATE: 20150227
